FAERS Safety Report 20727526 (Version 2)
Quarter: 2022Q4

REPORT INFORMATION
  Report Type: Spontaneous
  Country: DE (occurrence: None)
  Receive Date: 20220419
  Receipt Date: 20221101
  Transmission Date: 20230113
  Serious: Yes (Other)
  Sender: FDA-Public Use
  Company Number: 2022A148425

PATIENT
  Age: 41 Year
  Sex: Female

DRUGS (4)
  1. FASLODEX [Suspect]
     Active Substance: FULVESTRANT
     Indication: Breast cancer
     Dosage: IN COMBINATION WITH GONADOTROPIN-RELEASING-HORMONE NOS AND KISQALI
     Route: 065
  2. KISQALI [Suspect]
     Active Substance: RIBOCICLIB
     Indication: Breast cancer
     Dosage: IN COMBINATION WITH FASLODEX AND GONADOTROPIN-RELEASING-HORMONE NOS
     Route: 065
  3. PERJETA [Suspect]
     Active Substance: PERTUZUMAB
     Indication: Breast cancer metastatic
     Dosage: IN COMBINATION WITH HERCEPTIN AND AROMATASE INHIBITOR NOS
     Route: 065
  4. HERCEPTIN [Suspect]
     Active Substance: TRASTUZUMAB
     Indication: Breast cancer metastatic
     Dosage: IN COMBINATION WITH PERJETA AND AROMATASE INHIBITORS NOS
     Route: 065

REACTIONS (4)
  - Disease progression [Not Recovered/Not Resolved]
  - Metastases to bone [Not Recovered/Not Resolved]
  - Metastases to liver [Recovering/Resolving]
  - Off label use [Unknown]

NARRATIVE: CASE EVENT DATE: 20220101
